FAERS Safety Report 8300486-6 (Version None)
Quarter: 2012Q2

REPORT INFORMATION
  Report Type: 
  Country: None (occurrence: None)
  Receive Date: 20120417
  Receipt Date: 20120404
  Transmission Date: 20120825
  Serious: Yes (Death, Hospitalization, Other)
  Sender: FDA-Public Use
  Company Number: 2012MA004457

PATIENT
  Age: 59 Year
  Sex: Male
  Weight: 110.6777 kg

DRUGS (29)
  1. PLAVIX [Concomitant]
  2. LASIX [Concomitant]
  3. TORSEMIDE [Concomitant]
  4. NITROGLYCERIN [Concomitant]
  5. LISINOPRIL [Concomitant]
  6. MULTI-VITAMIN [Concomitant]
  7. MAGNESIUM [Concomitant]
  8. VITAMIN E [Concomitant]
  9. DIGOXIN [Suspect]
     Dosage: 0.25 MG;QD;PO
     Route: 048
     Dates: start: 20031103, end: 20080303
  10. KLOR-CON [Concomitant]
  11. ASPIRIN [Concomitant]
  12. DEMADEX [Concomitant]
  13. PLAVIX [Concomitant]
  14. COUMADIN [Concomitant]
  15. FUROSEMIDE [Concomitant]
  16. NIASPAN [Concomitant]
  17. FISH OIL [Concomitant]
  18. ALPHALIPOIC ACID [Concomitant]
  19. ALTACE [Concomitant]
  20. POTASSIUM CHLORIDE [Concomitant]
  21. LIPITOR [Concomitant]
  22. NITRATE [Concomitant]
  23. NITROGLYCERIN [Concomitant]
  24. ENTERIC ASPIRIN [Concomitant]
  25. ALDACTONE [Concomitant]
  26. COENZYME Q10 [Concomitant]
  27. MINITRAN [Concomitant]
  28. FUROSEMIDE [Concomitant]
  29. COREG [Concomitant]

REACTIONS (36)
  - CHEST PAIN [None]
  - HYPOVOLAEMIC SHOCK [None]
  - BUNDLE BRANCH BLOCK LEFT [None]
  - FALL [None]
  - PAIN [None]
  - SINUS TACHYCARDIA [None]
  - CARDIAC FAILURE CONGESTIVE [None]
  - HYPERTENSION [None]
  - INJURY [None]
  - ISCHAEMIC CARDIOMYOPATHY [None]
  - ORTHOPNOEA [None]
  - DIZZINESS [None]
  - ASTHENIA [None]
  - INTERNATIONAL NORMALISED RATIO INCREASED [None]
  - MUCOUS MEMBRANE DISORDER [None]
  - OEDEMA PERIPHERAL [None]
  - CORONARY ARTERY DISEASE [None]
  - COAGULOPATHY [None]
  - CARDIAC FAILURE [None]
  - DYSPNOEA [None]
  - LEFT VENTRICULAR DYSFUNCTION [None]
  - IRON DEFICIENCY ANAEMIA [None]
  - PALLOR [None]
  - PLEURAL EFFUSION [None]
  - CONGESTIVE CARDIOMYOPATHY [None]
  - GASTROINTESTINAL DISORDER [None]
  - VENOUS INSUFFICIENCY [None]
  - MITRAL VALVE INCOMPETENCE [None]
  - CARDIOMEGALY [None]
  - QRS AXIS ABNORMAL [None]
  - MYOCARDIAL INFARCTION [None]
  - ANAEMIA [None]
  - GASTROINTESTINAL HAEMORRHAGE [None]
  - HUMERUS FRACTURE [None]
  - HYPOTENSION [None]
  - ATRIAL FIBRILLATION [None]
